FAERS Safety Report 7380454-1 (Version None)
Quarter: 2011Q1

REPORT INFORMATION
  Report Type: 
  Country: None (occurrence: None)
  Receive Date: 20110324
  Receipt Date: 20110324
  Transmission Date: 20110831
  Serious: Yes (Life-Threatening, Hospitalization)
  Sender: FDA-Public Use
  Company Number: None

PATIENT
  Age: 27 Year
  Sex: Female
  Weight: 72.5755 kg

DRUGS (1)
  1. ZARAH TABLET'S 28'S WATSON [Suspect]
     Indication: ACNE
     Dosage: 1 TABLET DAILY
     Dates: start: 20110120, end: 20110312

REACTIONS (9)
  - ABASIA [None]
  - PAIN [None]
  - BLOOD POTASSIUM ABNORMAL [None]
  - EMOTIONAL DISORDER [None]
  - DECREASED ACTIVITY [None]
  - MUSCLE SPASMS [None]
  - CARDIAC FAILURE CONGESTIVE [None]
  - PULMONARY THROMBOSIS [None]
  - SHOCK [None]
